FAERS Safety Report 9249039 (Version 1)
Quarter: 2013Q1

REPORT INFORMATION
  Report Type: Spontaneous
  Country: US (occurrence: None)
  Receive Date: 20130305
  Receipt Date: 20130305
  Transmission Date: 20140127
  Serious: Yes (Other)
  Sender: FDA-Public Use
  Company Number: 163-21880-12060365

PATIENT
  Age: 78 Year
  Sex: Female
  Weight: 57.61 kg

DRUGS (12)
  1. REVLIMID [Suspect]
     Indication: PLASMA CELL MYELOMA
     Dosage: 25 MG, QD X 21 DAYS Q 28 DAYS, PO
     Route: 048
     Dates: start: 20100628
  2. ZOMETA(ZOLEDRONIC ACID)(UNKNOWN) [Concomitant]
  3. VITAMIN D(ERGOCALCIFEROL)(UNKNOWN) [Concomitant]
  4. SAM-EPA(FISH OIL)(UNKNOWN) [Concomitant]
  5. PRILOSEC [Concomitant]
  6. INDERAL(PROPRANOLOL)(UNKNOWN) [Concomitant]
  7. GLUTAMINE(LEVOGLUTAMIDE)(UNKNOWN) [Concomitant]
  8. EPIPEN(EPINEPHRINE) (UNKNOWN) [Concomitant]
  9. DEXAMETHASONE(DEXAMETHASONE)(UNKNOWN) [Concomitant]
  10. BIAXIN(CLARITHROMYCIN)(UNKNOWN) [Concomitant]
  11. GAMMA GLOBULIN(IMMUNOGLOBULIN HUMAN NORMAL)(UNKNOWN) [Concomitant]
  12. ATIVAN(LORAZEPAM)(UNKNOWN) [Concomitant]

REACTIONS (2)
  - Platelet count decreased [None]
  - Diarrhoea [None]
